FAERS Safety Report 23251619 (Version 1)
Quarter: 2023Q4

REPORT INFORMATION
  Report Type: Spontaneous
  Country: KR (occurrence: KR)
  Receive Date: 20231201
  Receipt Date: 20231201
  Transmission Date: 20240109
  Serious: Yes (Hospitalization)
  Sender: FDA-Public Use
  Company Number: None

PATIENT
  Age: 64 Year
  Sex: Female
  Weight: 67 kg

DRUGS (2)
  1. PLAVIX [Suspect]
     Active Substance: CLOPIDOGREL BISULFATE
     Indication: Angina pectoris
     Dosage: 1 DOSAGE FORMULATION, AT 1 DAY INTERVAL, FOR 5 DAY OF TERM ADMINISTARTION
     Route: 048
     Dates: start: 20220907, end: 20220911
  2. IODIXANOL [Suspect]
     Active Substance: IODIXANOL
     Indication: Angina pectoris
     Dosage: 1 DF
     Route: 013
     Dates: start: 20220907, end: 20220907

REACTIONS (4)
  - Drug eruption [Recovering/Resolving]
  - Feeling hot [Recovering/Resolving]
  - Pruritus [Recovering/Resolving]
  - Urticaria [Recovering/Resolving]

NARRATIVE: CASE EVENT DATE: 20220909
